FAERS Safety Report 4700164-6 (Version None)
Quarter: 2005Q2

REPORT INFORMATION
  Report Type: 
  Country: None (occurrence: None)
  Receive Date: 20050627
  Receipt Date: 20050613
  Transmission Date: 20051028
  Serious: Yes (Death, Other)
  Sender: FDA-Public Use
  Company Number: FR-JNJFOC-20050506660

PATIENT

DRUGS (1)
  1. REMICADE [Suspect]
     Route: 042

REACTIONS (2)
  - DEATH [None]
  - SQUAMOUS CELL CARCINOMA [None]
